FAERS Safety Report 11130481 (Version 6)
Quarter: 2017Q1

REPORT INFORMATION
  Report Type: Spontaneous
  Country: US (occurrence: US)
  Receive Date: 20150522
  Receipt Date: 20170321
  Transmission Date: 20170428
  Serious: Yes (Hospitalization, Other)
  Sender: FDA-Public Use
  Company Number: US-ASTRAZENECA-2014SE53937

PATIENT
  Age: 82 Year
  Sex: Male
  Weight: 86.2 kg

DRUGS (23)
  1. EVOXAC [Concomitant]
     Active Substance: CEVIMELINE HYDROCHLORIDE
  2. COREG [Concomitant]
     Active Substance: CARVEDILOL
  3. LEVOTHYROXINE. [Concomitant]
     Active Substance: LEVOTHYROXINE
  4. NEXIUM [Suspect]
     Active Substance: ESOMEPRAZOLE MAGNESIUM
     Route: 048
  5. LANTUS [Concomitant]
     Active Substance: INSULIN GLARGINE
     Indication: TYPE 2 DIABETES MELLITUS
     Dosage: 20 UNITS, EVERY NIGHT AT BEDTIME
     Route: 058
  6. ZOLPIDEM [Concomitant]
     Active Substance: ZOLPIDEM\ZOLPIDEM TARTRATE
  7. NORVASC [Concomitant]
     Active Substance: AMLODIPINE BESYLATE
  8. TORSEMIDE. [Concomitant]
     Active Substance: TORSEMIDE
  9. CALCITRIOL. [Concomitant]
     Active Substance: CALCITRIOL
  10. BYDUREON [Suspect]
     Active Substance: EXENATIDE
     Indication: TYPE 2 DIABETES MELLITUS
     Route: 058
     Dates: start: 201406
  11. AVODART [Concomitant]
     Active Substance: DUTASTERIDE
  12. AMBIEN [Concomitant]
     Active Substance: ZOLPIDEM TARTRATE
  13. BYDUREON [Suspect]
     Active Substance: EXENATIDE
     Indication: TYPE 2 DIABETES MELLITUS
     Route: 058
  14. CALCITRATE [Concomitant]
     Active Substance: CALCIUM CITRATE
  15. FLONASE [Concomitant]
     Active Substance: FLUTICASONE PROPIONATE
  16. DIOVAN [Concomitant]
     Active Substance: VALSARTAN
  17. LIPITOR [Concomitant]
     Active Substance: ATORVASTATIN CALCIUM
  18. VALSARTAN. [Concomitant]
     Active Substance: VALSARTAN
  19. PLAVIX [Concomitant]
     Active Substance: CLOPIDOGREL BISULFATE
  20. BYDUREON [Suspect]
     Active Substance: EXENATIDE
     Indication: TYPE 2 DIABETES MELLITUS
     Dosage: SINGLE DOSE TRAY FROM
     Route: 058
  21. GABAPENTIN. [Concomitant]
     Active Substance: GABAPENTIN
  22. CLARITIN [Concomitant]
     Active Substance: LORATADINE
  23. ALLOPURINOL. [Concomitant]
     Active Substance: ALLOPURINOL

REACTIONS (13)
  - Injection site swelling [Not Recovered/Not Resolved]
  - Weight increased [Unknown]
  - Injection site nodule [Recovering/Resolving]
  - Rib fracture [Unknown]
  - Drug dose omission [Unknown]
  - Blood glucose increased [Unknown]
  - Underdose [Unknown]
  - Device malfunction [Unknown]
  - Cataract [Unknown]
  - Drug dispensing error [Unknown]
  - Injection site mass [Not Recovered/Not Resolved]
  - Blood glucose fluctuation [Unknown]
  - Fall [Unknown]

NARRATIVE: CASE EVENT DATE: 2014
